FAERS Safety Report 6275025-4 (Version None)
Quarter: 2009Q3

REPORT INFORMATION
  Report Type: 
  Country: None (occurrence: None)
  Receive Date: 20090721
  Receipt Date: 20090713
  Transmission Date: 20100115
  Serious: Yes (Hospitalization)
  Sender: FDA-Public Use
  Company Number: US-SOLVAY-00209003734

PATIENT
  Age: 743 Month
  Sex: Male
  Weight: 113.63 kg

DRUGS (5)
  1. UNIDENTIFIED OTHER MEDICATIONS [Concomitant]
     Indication: DRUG USE FOR UNKNOWN INDICATION
     Dosage: DAILY DOSE:  UNKNOWN
     Route: 065
  2. ANDROGEL [Suspect]
     Indication: BLOOD TESTOSTERONE DECREASED
     Dosage: DAILY DOSE: 5 GRAM(S) VIA PUMP
     Route: 062
     Dates: start: 20081101, end: 20081201
  3. ANDROGEL [Suspect]
     Dosage: DAILY DOSE: 2.5 GRAM(S) VIA PUMP
     Route: 062
     Dates: start: 20090101, end: 20090101
  4. ANDROGEL [Suspect]
     Dosage: DAILY DOSE: 3.75 GRAM(S) VIA PUMP
     Route: 062
     Dates: start: 20090101, end: 20090201
  5. ANDROGEL [Suspect]
     Dosage: DAILY DOSE: 3.75 GRAM(S) VIA PUMP
     Route: 062
     Dates: start: 20090701, end: 20090713

REACTIONS (1)
  - ATRIAL FIBRILLATION [None]
